FAERS Safety Report 10016731 (Version 3)
Quarter: 2014Q1

REPORT INFORMATION
  Report Type: Report from Study
  Country: CA (occurrence: CA)
  Receive Date: 20140318
  Receipt Date: 20140320
  Transmission Date: 20141002
  Serious: Yes (Hospitalization, Disabling, Other)
  Sender: FDA-Public Use
  Company Number: PHHY2010CA09762

PATIENT
  Age: 49 Year
  Sex: Female

DRUGS (7)
  1. CLOZARIL [Suspect]
     Indication: SCHIZOPHRENIA
     Route: 048
     Dates: start: 20070719, end: 20100127
  2. CLOZARIL [Suspect]
     Route: 048
     Dates: start: 20110317
  3. CLONAZEPAM [Concomitant]
  4. EPIVAL [Concomitant]
  5. CLOZAPINE [Concomitant]
  6. PREDNISOLONE [Concomitant]
  7. LAMOTRIGINE [Concomitant]

REACTIONS (8)
  - Rhabdomyolysis [Not Recovered/Not Resolved]
  - Malaise [Not Recovered/Not Resolved]
  - Myalgia [Not Recovered/Not Resolved]
  - Respiratory tract infection [Not Recovered/Not Resolved]
  - Autoimmune disorder [Unknown]
  - Blood creatine phosphokinase MB increased [Recovering/Resolving]
  - Blood creatine phosphokinase increased [Recovering/Resolving]
  - Arthritis [Unknown]
